FAERS Safety Report 4487649-5 (Version None)
Quarter: 2004Q4

REPORT INFORMATION
  Report Type: 
  Country: None (occurrence: None)
  Receive Date: 20041025
  Receipt Date: 20041019
  Transmission Date: 20050328
  Serious: Yes (Death)
  Sender: FDA-Public Use
  Company Number: S04-USA-06880-01

PATIENT
  Age: 22 Year
  Sex: Male

DRUGS (4)
  1. LEXAPRO [Suspect]
     Indication: DEPRESSION
     Dosage: 20 MG QD; PO
     Route: 048
     Dates: start: 20040906, end: 20040919
  2. LEXAPRO [Suspect]
     Indication: DEPRESSION
     Dosage: 10 MG QD; PO
     Route: 048
     Dates: start: 20040902, end: 20040905
  3. ALCOHOL [Concomitant]
  4. CONCERTA [Concomitant]

REACTIONS (3)
  - ALCOHOL USE [None]
  - COMPLETED SUICIDE [None]
  - GUN SHOT WOUND [None]
